FAERS Safety Report 21603627 (Version 1)
Quarter: 2022Q4

REPORT INFORMATION
  Report Type: Spontaneous
  Country: US (occurrence: US)
  Receive Date: 20221116
  Receipt Date: 20221116
  Transmission Date: 20230113
  Serious: No
  Sender: FDA-Public Use
  Company Number: US-PERRIGO-22US004173

PATIENT
  Age: 78 Year
  Sex: Female
  Weight: 70.748 kg

DRUGS (8)
  1. POLYETHYLENE GLYCOL 3350 [Suspect]
     Active Substance: POLYETHYLENE GLYCOL 3350
     Indication: Constipation
     Dosage: LITTLE MORE THAN 8.5 G, PRN DAILY
     Route: 048
     Dates: end: 20220131
  2. POLYETHYLENE GLYCOL 3350 [Suspect]
     Active Substance: POLYETHYLENE GLYCOL 3350
     Dosage: LITTLE MORE THAN 8.5 G, DAILY
     Route: 048
     Dates: start: 20220201, end: 20220313
  3. NABUMETONE [Concomitant]
     Active Substance: NABUMETONE
     Indication: Osteoarthritis
     Dosage: 750 MG, BID
     Route: 065
     Dates: start: 20220313
  4. OSTEO-BI-FLEX [Concomitant]
     Indication: Osteoarthritis
     Dosage: UNK
     Route: 065
     Dates: start: 20220203
  5. LISINOPRIL [Concomitant]
     Active Substance: LISINOPRIL
     Indication: Hypertension
     Dosage: 40 MG
     Route: 065
  6. AMLODIPINE [Concomitant]
     Active Substance: AMLODIPINE BESYLATE
     Indication: Hypertension
     Dosage: 5 MG
     Route: 065
     Dates: start: 202201
  7. METOPROLOL [Concomitant]
     Active Substance: METOPROLOL
     Indication: Hypertension
     Dosage: 12.5 MG
     Route: 065
     Dates: start: 202202
  8. HYDROCHLOROTHIAZIDE [Concomitant]
     Active Substance: HYDROCHLOROTHIAZIDE
     Indication: Hypertension
     Dosage: UNK
     Route: 065

REACTIONS (2)
  - Underdose [Recovered/Resolved]
  - Incorrect product administration duration [Recovered/Resolved]

NARRATIVE: CASE EVENT DATE: 20220208
